FAERS Safety Report 7386713-0 (Version None)
Quarter: 2011Q1

REPORT INFORMATION
  Report Type: 
  Country: None (occurrence: None)
  Receive Date: 20110331
  Receipt Date: 20110325
  Transmission Date: 20110831
  Serious: Yes (Hospitalization)
  Sender: FDA-Public Use
  Company Number: FR-PFIZER INC-2011070747

PATIENT
  Age: 60 Year
  Sex: Male

DRUGS (5)
  1. EUPANTOL [Suspect]
     Dosage: 20 MG; DAILY DOSE UNKNOWN
     Route: 048
     Dates: start: 20101201, end: 20110118
  2. LEVOTHYROX [Concomitant]
     Indication: HYPOTHYROIDISM
  3. PLAVIX [Suspect]
     Indication: PERIPHERAL ARTERIAL OCCLUSIVE DISEASE
     Dosage: 75 MG, DAILY DOSE UNKNOWN
     Route: 048
     Dates: start: 20101201, end: 20110118
  4. CORTANCYL [Concomitant]
     Indication: POLYMYALGIA RHEUMATICA
  5. PRAVASTATIN [Concomitant]
     Indication: DYSLIPIDAEMIA

REACTIONS (1)
  - AGRANULOCYTOSIS [None]
